FAERS Safety Report 5449431-1 (Version None)
Quarter: 2007Q3

REPORT INFORMATION
  Report Type: 
  Country: None (occurrence: None)
  Receive Date: 20070911
  Receipt Date: 20070831
  Transmission Date: 20080115
  Serious: Yes (Other)
  Sender: FDA-Public Use
  Company Number: GB-PFIZER INC-2007073580

PATIENT
  Sex: Female

DRUGS (1)
  1. EXUBERA [Suspect]
     Indication: DIABETES MELLITUS
     Route: 048
     Dates: start: 20070707, end: 20070808

REACTIONS (4)
  - BLOOD GLUCOSE INCREASED [None]
  - FLUID RETENTION [None]
  - ILL-DEFINED DISORDER [None]
  - SWELLING [None]
